FAERS Safety Report 8829174 (Version 1)
Quarter: 2012Q4

REPORT INFORMATION
  Report Type: 
  Country: US (occurrence: US)
  Receive Date: 20121008
  Receipt Date: 20121008
  Transmission Date: 20130627
  Serious: Yes (Other)
  Sender: FDA-Public Use
  Company Number: CHPA2012US020651

PATIENT
  Sex: Female

DRUGS (1)
  1. THERAFLU VAPOR PATCH [Suspect]
     Indication: DYSPNOEA
     Dosage: 1 DF at night, PRN

REACTIONS (5)
  - Attention deficit/hyperactivity disorder [Not Recovered/Not Resolved]
  - Therapeutic response unexpected [Unknown]
  - Off label use [Unknown]
  - Overdose [Unknown]
  - Incorrect dose administered [Unknown]
